FAERS Safety Report 4975700-5 (Version None)
Quarter: 2006Q2

REPORT INFORMATION
  Report Type: 
  Country: None (occurrence: None)
  Receive Date: 20060411
  Receipt Date: 20060330
  Transmission Date: 20061013
  Serious: Yes (Hospitalization, Other)
  Sender: FDA-Public Use
  Company Number: HQWYE281110JAN06

PATIENT
  Age: 62 Year
  Sex: Female

DRUGS (13)
  1. MYLOTARG [Suspect]
     Indication: MYELODYSPLASTIC SYNDROME
     Dosage: A SINGLE 5.7 MG DOSE, INTRAVENOUS
     Route: 042
     Dates: start: 20050926, end: 20050926
  2. MYLOTARG [Suspect]
     Indication: MYELODYSPLASTIC SYNDROME
     Dosage: A SINGLE 5.7 MG DOSE, INTRAVENOUS
     Route: 042
     Dates: start: 20060116, end: 20060116
  3. ARSENIC TRIOXIDE (ARSENIC TRIOXIDE) [Suspect]
     Indication: MYELODYSPLASTIC SYNDROME
     Dosage: 19 MG 1X PER 1 DAY, INTRAVENOUS
     Route: 042
     Dates: start: 20050919, end: 20051208
  4. ARSENIC TRIOXIDE (ARSENIC TRIOXIDE) [Suspect]
     Indication: MYELODYSPLASTIC SYNDROME
     Dosage: 19 MG 1X PER 1 DAY, INTRAVENOUS
     Route: 042
     Dates: start: 20060103, end: 20060101
  5. ARSENIC TRIOXIDE (ARSENIC TRIOXIDE) [Suspect]
     Indication: MYELODYSPLASTIC SYNDROME
     Dosage: 19 MG 1X PER 1 DAY, INTRAVENOUS
     Route: 042
     Dates: start: 20060116
  6. ALPHA-LIPON (THIOCTIC ACID) [Concomitant]
  7. MULTIVITAMINS, PLAIN (MULTIVITAMINS, PLAIN) [Concomitant]
  8. ASCORBIC ACID [Concomitant]
  9. PYRIDOXINE (PYRIDOXINE) [Concomitant]
  10. CYANOCOBALAMIN [Concomitant]
  11. B COMPLEX (NICOTINAMIDE/PYRIDOXINE HYDROCHLORIDE/RIBOFLAVIN/THIAMINE H [Concomitant]
  12. UNSPECIFIED GASTROINTESTINAL AGENT (UNSPECIFIED GASTROINTESTINAL AGENT [Concomitant]
  13. ARIMIDEX [Concomitant]

REACTIONS (7)
  - ARTHRALGIA [None]
  - CELLULITIS [None]
  - DIARRHOEA [None]
  - FEBRILE NEUTROPENIA [None]
  - JOINT EFFUSION [None]
  - JOINT SWELLING [None]
  - PANNICULITIS [None]
